FAERS Safety Report 7654142-8 (Version None)
Quarter: 2011Q3

REPORT INFORMATION
  Report Type: 
  Country: None (occurrence: None)
  Receive Date: 20110803
  Receipt Date: 20110726
  Transmission Date: 20111222
  Serious: Yes (Hospitalization)
  Sender: FDA-Public Use
  Company Number: PHHY2011US68895

PATIENT
  Sex: Male

DRUGS (4)
  1. EXTAVIA [Suspect]
     Indication: MULTIPLE SCLEROSIS
     Dosage: 0.25 MG, QOD
     Route: 058
     Dates: start: 20100224
  2. ACTOS [Concomitant]
     Dosage: 30 MG, QD
  3. AMPYRA [Concomitant]
     Dosage: 10 MG, QD
  4. PERCOCET [Concomitant]
     Dosage: UNK MG, PRN

REACTIONS (1)
  - INFECTION [None]
